FAERS Safety Report 8710988 (Version 2)
Quarter: 2012Q4

REPORT INFORMATION
  Report Type: 
  Country: JP (occurrence: JP)
  Receive Date: 20120807
  Receipt Date: 20120928
  Transmission Date: 20130627
  Serious: Yes (Other)
  Sender: FDA-Public Use
  Company Number: JP-SANOFI-AVENTIS-2012SA055414

PATIENT
  Age: 41 Year
  Sex: Female
  Weight: 77 kg

DRUGS (12)
  1. MYSLEE [Suspect]
     Indication: INSOMNIA
     Route: 048
     Dates: start: 2001, end: 2003
  2. MYSLEE [Suspect]
     Indication: INSOMNIA
     Route: 048
     Dates: start: 2008, end: 201101
  3. MYSLEE [Suspect]
     Indication: INSOMNIA
     Route: 048
     Dates: start: 201101, end: 201111
  4. MYSLEE [Suspect]
     Indication: INSOMNIA
     Route: 048
     Dates: start: 201111, end: 201111
  5. BROTIZOLAM [Suspect]
     Indication: INSOMNIA
     Route: 048
     Dates: start: 201101, end: 201102
  6. BROTIZOLAM [Suspect]
     Indication: INSOMNIA
     Route: 048
     Dates: start: 201111, end: 201111
  7. TRIAZOLAM [Suspect]
     Indication: INSOMNIA
     Route: 048
     Dates: start: 1998, end: 2001
  8. TRIAZOLAM [Suspect]
     Indication: INSOMNIA
     Route: 048
     Dates: start: 2003
  9. TRIAZOLAM [Suspect]
     Indication: INSOMNIA
     Route: 048
     Dates: start: 201111, end: 201112
  10. THEODUR [Concomitant]
     Route: 048
  11. PULMICORT [Concomitant]
     Route: 055
  12. LOXONIN [Concomitant]
     Dosage: formulation

REACTIONS (1)
  - Abnormal behaviour [Unknown]
